FAERS Safety Report 4562335-1 (Version None)
Quarter: 2005Q1

REPORT INFORMATION
  Report Type: 
  Country: None (occurrence: None)
  Receive Date: 20050121
  Receipt Date: 20041115
  Transmission Date: 20050727
  Serious: Yes (Hospitalization)
  Sender: FDA-Public Use
  Company Number: 2004094337

PATIENT
  Sex: Female

DRUGS (8)
  1. CELEBREX [Suspect]
     Indication: ARTHRITIS
     Dosage: 200 MG
  2. CLONIDINE [Concomitant]
  3. LEVOTHYROXINE SODIUM [Concomitant]
  4. FUROSEMIDE (FUROSEMIDE) [Concomitant]
  5. TIZANIDINE HCL [Concomitant]
  6. PROPACET 100 [Concomitant]
  7. ALLOPURINOL [Concomitant]
  8. PROBENECID [Concomitant]

REACTIONS (2)
  - DEHYDRATION [None]
  - RENAL DISORDER [None]
